FAERS Safety Report 5913312-7 (Version None)
Quarter: 2008Q4

REPORT INFORMATION
  Report Type: 
  Country: None (occurrence: None)
  Receive Date: 20081008
  Receipt Date: 20081008
  Transmission Date: 20090506
  Serious: Yes (Hospitalization)
  Sender: FDA-Public Use
  Company Number: None

PATIENT
  Age: 85 Year
  Sex: Male
  Weight: 104.3273 kg

DRUGS (9)
  1. MORPHINE [Suspect]
     Indication: BACK PAIN
     Dosage: 1 MG ONE TIME DOSE IV
     Route: 042
  2. LISINOPRIL [Concomitant]
  3. SIMVASTATIN [Concomitant]
  4. ASPIRIN [Concomitant]
  5. AMITRIPTYLINE HCL [Concomitant]
  6. HYDROCHLOROTHIAZIDE [Concomitant]
  7. GLIPIZIDE [Concomitant]
  8. HYDROCODONE/APAP [Concomitant]
  9. STEROIDS [Concomitant]

REACTIONS (1)
  - TREMOR [None]
